FAERS Safety Report 13781635 (Version 2)
Quarter: 2017Q3

REPORT INFORMATION
  Report Type: Spontaneous
  Country: US (occurrence: US)
  Receive Date: 20170724
  Receipt Date: 20170823
  Transmission Date: 20171127
  Serious: Yes (Death)
  Sender: FDA-Public Use
  Company Number: US-UNITED THERAPEUTICS-UNT-2017-009038

PATIENT
  Age: 70 Year
  Sex: Male
  Weight: 121.18 kg

DRUGS (2)
  1. TYVASO [Suspect]
     Active Substance: TREPROSTINIL
     Dosage: 18-54 ?G, QID
  2. TYVASO [Suspect]
     Active Substance: TREPROSTINIL
     Indication: PULMONARY HYPERTENSION
     Dosage: 60 ?G, QID
     Dates: start: 20170221

REACTIONS (8)
  - Pulmonary hypertension [Unknown]
  - Pulmonary fibrosis [Unknown]
  - Device issue [Unknown]
  - Death [Fatal]
  - Cardiac failure [Unknown]
  - Oxygen saturation decreased [Unknown]
  - Off label use [Unknown]
  - Oedema [Unknown]

NARRATIVE: CASE EVENT DATE: 2017
